FAERS Safety Report 6713365-2 (Version None)
Quarter: 2010Q2

REPORT INFORMATION
  Report Type: 
  Country: None (occurrence: None)
  Receive Date: 20100503
  Receipt Date: 20090710
  Transmission Date: 20101027
  Serious: No
  Sender: FDA-Public Use
  Company Number: 2009-00334

PATIENT
  Age: 57 Year
  Sex: Female
  Weight: 68.9467 kg

DRUGS (2)
  1. ZICAM COLD REMEDY GELS SWABS [Suspect]
     Dosage: ONE DOSE 4YRS AGO-4YRS AGO, LSWAB
  2. PRILOSEC [Concomitant]

REACTIONS (1)
  - ANOSMIA [None]
